FAERS Safety Report 5380401-8 (Version None)
Quarter: 2007Q3

REPORT INFORMATION
  Report Type: 
  Country: None (occurrence: None)
  Receive Date: 20070706
  Receipt Date: 20070529
  Transmission Date: 20080115
  Serious: No
  Sender: FDA-Public Use
  Company Number: A0652847A

PATIENT
  Age: 47 Year
  Sex: Female

DRUGS (8)
  1. TYKERB [Suspect]
     Indication: BREAST CANCER
     Dosage: 1250MG PER DAY
     Route: 048
     Dates: start: 20070524
  2. HERCEPTIN [Concomitant]
  3. TAMOXIFEN CITRATE [Concomitant]
  4. PERCOCET [Concomitant]
  5. XANAX [Concomitant]
  6. HYDROCHLOROTHIAZIDE [Concomitant]
  7. TOPROL-XL [Concomitant]
  8. LYRICA [Concomitant]

REACTIONS (6)
  - ABDOMINAL PAIN UPPER [None]
  - BONE PAIN [None]
  - CHILLS [None]
  - FEELING ABNORMAL [None]
  - ILL-DEFINED DISORDER [None]
  - PARAESTHESIA [None]
